FAERS Safety Report 20560433 (Version 3)
Quarter: 2022Q1

REPORT INFORMATION
  Report Type: Spontaneous
  Country: FR (occurrence: FR)
  Receive Date: 20220307
  Receipt Date: 20220323
  Transmission Date: 20220423
  Serious: Yes (Hospitalization, Other)
  Sender: FDA-Public Use
  Company Number: None

PATIENT
  Age: 67 Year
  Sex: Male
  Weight: 95 kg

DRUGS (13)
  1. VERAPAMIL HYDROCHLORIDE [Suspect]
     Active Substance: VERAPAMIL HYDROCHLORIDE
     Indication: Angiocardiogram
     Dosage: 2.5 MILLIGRAM, TOTAL (SINGLE (1 TOTAL))
     Route: 042
     Dates: start: 20211213, end: 20211213
  2. XYLOCAINE [Suspect]
     Active Substance: LIDOCAINE HYDROCHLORIDE
     Indication: Angiocardiogram
     Dosage: 1 MILLILITER, TOTAL
     Route: 058
     Dates: start: 20211213, end: 20211213
  3. IOMERON [Suspect]
     Active Substance: IOMEPROL
     Indication: Angiocardiogram
     Dosage: 120 MILLILITER, TOTAL
     Route: 042
     Dates: start: 20211213, end: 20211213
  4. COMIRNATY [Suspect]
     Active Substance: TOZINAMERAN
     Indication: COVID-19 immunisation
     Dosage: 1 DOSAGE FORM, TOTAL
     Route: 030
     Dates: start: 20211210, end: 20211210
  5. LIDOCAINE [Suspect]
     Active Substance: LIDOCAINE
     Indication: Angiocardiogram
     Dosage: 1 MILLILITER, TOTAL (SINGLE (1 TOTAL)
     Route: 058
     Dates: start: 20211213, end: 20211213
  6. HEPARIN [Suspect]
     Active Substance: HEPARIN SODIUM
     Indication: Angiocardiogram
     Dosage: 3000 INTERNATIONAL UNIT, (3000 UI)
     Route: 040
     Dates: start: 20211213, end: 20211213
  7. POTASSIUM CHLORIDE [Concomitant]
     Active Substance: POTASSIUM CHLORIDE
     Dosage: UNK
     Route: 065
  8. FUROSEMIDE [Concomitant]
     Active Substance: FUROSEMIDE
     Dosage: UNK
     Route: 065
  9. ATORVASTATIN [Concomitant]
     Active Substance: ATORVASTATIN
     Dosage: UNK
     Route: 065
  10. ENALAPRIL/LERCANIDIPINE BOUCHARA RECORDATI [Concomitant]
     Dosage: UNK, (20 MG/20 MG)
     Route: 065
  11. AMIODARONE [Concomitant]
     Active Substance: AMIODARONE
     Dosage: UNK
     Route: 065
  12. BISOPROLOL [Concomitant]
     Active Substance: BISOPROLOL
     Dosage: UNK
     Route: 065
  13. ELIQUIS [Concomitant]
     Active Substance: APIXABAN
     Indication: Atrial fibrillation
     Dosage: 5 MILLIGRAM, BID, (12 H, 5 MG X 2 /JOUR)
     Route: 048
     Dates: start: 202109

REACTIONS (1)
  - Ischaemic stroke [Not Recovered/Not Resolved]

NARRATIVE: CASE EVENT DATE: 20211215
